FAERS Safety Report 10007274 (Version 2)
Quarter: 2014Q1

REPORT INFORMATION
  Report Type: Spontaneous
  Country: US (occurrence: US)
  Receive Date: 20140313
  Receipt Date: 20140319
  Transmission Date: 20141002
  Serious: Yes (Hospitalization)
  Sender: FDA-Public Use
  Company Number: US-BAXTER-2014BAX012650

PATIENT
  Age: 72 Year
  Sex: Female

DRUGS (4)
  1. DIANEAL LOW CALCIUM [Suspect]
     Indication: PERITONEAL DIALYSIS
     Route: 033
     Dates: start: 201306, end: 20140302
  2. DIANEAL LOW CALCIUM [Suspect]
     Route: 033
     Dates: start: 20140303
  3. DIANEAL LOW CALCIUM [Suspect]
     Indication: PERITONEAL DIALYSIS
     Route: 033
     Dates: start: 201306, end: 20140302
  4. DIANEAL LOW CALCIUM [Suspect]
     Route: 033
     Dates: start: 20140303

REACTIONS (2)
  - Influenza like illness [Recovered/Resolved]
  - Dehydration [Recovered/Resolved]
